FAERS Safety Report 4943018-2 (Version None)
Quarter: 2006Q1

REPORT INFORMATION
  Report Type: 
  Country: None (occurrence: None)
  Receive Date: 20060314
  Receipt Date: 20040625
  Transmission Date: 20060701
  Serious: Yes (Other)
  Sender: FDA-Public Use
  Company Number: PL-SANOFI-SYNTHELABO-D01200402

PATIENT
  Age: 71 Year
  Sex: Male
  Weight: 105 kg

DRUGS (6)
  1. FONDAPARINUX [Suspect]
     Indication: ACUTE CORONARY SYNDROME
     Dosage: 2.5MG PER DAY
     Route: 058
     Dates: start: 20040216, end: 20040219
  2. ASPIRIN [Concomitant]
     Route: 065
  3. CLOPIDOGREL [Concomitant]
     Dosage: 75MG PER DAY
     Route: 065
  4. METOPROLOL [Concomitant]
     Dosage: 50MG PER DAY
     Route: 065
  5. TICLOPIDINE HCL [Concomitant]
     Dosage: 500MG PER DAY
     Route: 065
  6. ZOCOR [Concomitant]
     Route: 065

REACTIONS (1)
  - CATHETER RELATED COMPLICATION [None]
